FAERS Safety Report 7760930-X (Version None)
Quarter: 2011Q3

REPORT INFORMATION
  Report Type: 
  Country: None (occurrence: None)
  Receive Date: 20110919
  Receipt Date: 20110820
  Transmission Date: 20111222
  Serious: Yes (Hospitalization)
  Sender: FDA-Public Use
  Company Number: PHHO2011US15551

PATIENT
  Age: 58 Year
  Sex: Female
  Weight: 169.6 kg

DRUGS (8)
  1. MULTI-VITAMINS [Concomitant]
     Dosage: UNK
     Dates: start: 19990101
  2. ONDANSETRON [Concomitant]
     Indication: VERTIGO
     Dosage: UNK
     Dates: start: 20110428
  3. IMATINIB MESYLATE [Suspect]
     Indication: CHRONIC MYELOID LEUKAEMIA
     Dosage: 400 MG, QD
     Route: 048
     Dates: start: 20110522
  4. ESOMEPRAZOLE MAGNESIUM [Concomitant]
     Indication: PEPTIC ULCER
     Dosage: UNK
     Dates: start: 20020101
  5. CYANOCOBALAMIN [Concomitant]
     Indication: FATIGUE
     Dosage: UNK
     Dates: start: 20090601
  6. SYNTHROID [Concomitant]
     Indication: HYPOTHYROIDISM
     Dosage: UNK
     Dates: start: 19880101
  7. PROMETHAZINE [Concomitant]
     Indication: VERTIGO
     Dosage: UNK
     Dates: start: 20110428
  8. MECLIZINE [Concomitant]
     Indication: VERTIGO
     Dosage: UNK
     Dates: start: 20110428

REACTIONS (1)
  - CEREBROVASCULAR ACCIDENT [None]
